FAERS Safety Report 11642369 (Version 1)
Quarter: 2015Q4

REPORT INFORMATION
  Report Type: Spontaneous
  Country: US (occurrence: US)
  Receive Date: 20151019
  Receipt Date: 20151019
  Transmission Date: 20160304
  Serious: Yes (Congenital Anomaly)
  Sender: FDA-Public Use
  Company Number: US-ABBVIE-15P-163-1481918-00

PATIENT
  Sex: Female

DRUGS (1)
  1. DEPAKOTE [Suspect]
     Active Substance: DIVALPROEX SODIUM
     Indication: MATERNAL EXPOSURE TIMING UNSPECIFIED
     Route: 064

REACTIONS (14)
  - Injury [Unknown]
  - Activities of daily living impaired [Unknown]
  - Life expectancy shortened [Unknown]
  - Congenital anomaly [Unknown]
  - Pain [Unknown]
  - Loose associations [Unknown]
  - Atrial septal defect [Unknown]
  - Deformity [Unknown]
  - Anxiety [Unknown]
  - Feelings of worthlessness [Unknown]
  - Anhedonia [Unknown]
  - Foetal exposure during pregnancy [Unknown]
  - Cleft palate [Unknown]
  - Emotional distress [Unknown]
